FAERS Safety Report 9132460 (Version 10)
Quarter: 2014Q4

REPORT INFORMATION
  Report Type: Spontaneous
  Country: US (occurrence: US)
  Receive Date: 20130301
  Receipt Date: 20141211
  Transmission Date: 20150529
  Serious: Yes (Hospitalization, Other)
  Sender: FDA-Public Use
  Company Number: US-GLAXOSMITHKLINE-A1014196A

PATIENT
  Age: 37 Year
  Sex: Female

DRUGS (11)
  1. FLOLAN [Suspect]
     Active Substance: EPOPROSTENOL SODIUM
     Dosage: 18 NG/KG/MIN
     Dates: end: 20141030
  2. REVATIO [Concomitant]
     Active Substance: SILDENAFIL CITRATE
  3. SILDENAFIL. [Concomitant]
     Active Substance: SILDENAFIL
  4. TYVASO [Suspect]
     Active Substance: TREPROSTINIL
     Indication: PRODUCT USED FOR UNKNOWN INDICATION
  5. LETAIRIS [Concomitant]
     Active Substance: AMBRISENTAN
  6. FLOLAN [Suspect]
     Active Substance: EPOPROSTENOL SODIUM
     Dosage: UNK
     Dates: start: 20130219
  7. FLOLAN [Suspect]
     Active Substance: EPOPROSTENOL SODIUM
     Dosage: UNK
     Dates: start: 20130219
  8. TREPROSTINIL [Concomitant]
     Active Substance: TREPROSTINIL
  9. FLOLAN [Suspect]
     Active Substance: EPOPROSTENOL SODIUM
     Indication: PULMONARY ARTERIAL HYPERTENSION
     Dosage: 10.5 NG/KG/MIN CONTINUOUSLYDOSE: 18 NG/KG/MIN, CONC: 30,000 NG/ML, PUMP RATE: 81 ML/DAY
     Route: 042
     Dates: start: 20130219, end: 201410
  10. COUMADIN [Concomitant]
     Active Substance: WARFARIN SODIUM
  11. FLOLAN [Suspect]
     Active Substance: EPOPROSTENOL SODIUM
     Dosage: 18 NG/KG/MIN

REACTIONS (6)
  - Pneumonia [Unknown]
  - Fall [Recovered/Resolved]
  - Hospitalisation [Unknown]
  - Toothache [Not Recovered/Not Resolved]
  - Headache [Not Recovered/Not Resolved]
  - Nausea [Unknown]

NARRATIVE: CASE EVENT DATE: 20130220
